FAERS Safety Report 18399363 (Version 1)
Quarter: 2020Q4

REPORT INFORMATION
  Report Type: Other
  Country: CA (occurrence: CA)
  Receive Date: 20201019
  Receipt Date: 20201019
  Transmission Date: 20210114
  Serious: Yes (Other)
  Sender: FDA-Public Use
  Company Number: CA-PFIZER INC-2020400871

PATIENT
  Age: 37 Year
  Sex: Female

DRUGS (13)
  1. COPPER [Suspect]
     Active Substance: COPPER
     Dosage: UNK
     Route: 048
  2. MAGNESIUM [Concomitant]
     Active Substance: MAGNESIUM
     Dosage: UNK
     Route: 065
  3. ALLIUM SATIVUM/CAPSICUM ANNUUM/CRATAEGUS SPP./VACCINIUM MYRTILLUS/ZINGIBER OFFICINALE [Suspect]
     Active Substance: HERBALS
     Dosage: UNK
  4. SELENIUM [Suspect]
     Active Substance: SELENIUM
     Dosage: UNK
     Route: 048
  5. SODIUM BICARBONATE. [Suspect]
     Active Substance: SODIUM BICARBONATE
     Dosage: 1.25 ML
     Route: 042
  6. WITHANIA SOMNIFERA [Suspect]
     Active Substance: HERBALS
     Dosage: 600 MG
     Route: 048
  7. ASCORBIC ACID. [Suspect]
     Active Substance: ASCORBIC ACID
     Dosage: UNK
     Route: 042
  8. VITAMIN B COMPLEX [Suspect]
     Active Substance: CYANOCOBALAMIN\DEXPANTHENOL\NIACINAMIDE\PYRIDOXINE HYDROCHLORIDE\RIBOFLAVIN 5^-PHOSPHATE SODIUM\THIAMINE HYDROCHLORIDE\VITAMIN B COMPLEX
     Dosage: UNK
     Route: 042
  9. XARELTO [Suspect]
     Active Substance: RIVAROXABAN
     Indication: THROMBOSIS PROPHYLAXIS
     Dosage: 15 MG, 1X/DAY
  10. VITAMIN K [Concomitant]
     Active Substance: PHYTONADIONE
     Dosage: UNK
  11. L-CARNITINE [LEVOCARNITINE] [Suspect]
     Active Substance: LEVOCARNITINE
     Dosage: UNK
     Route: 042
  12. ACETYLCYSTEINE. [Suspect]
     Active Substance: ACETYLCYSTEINE
     Dosage: UNK
     Route: 042
  13. ALPHA LIPOIC ACID [Concomitant]
     Active Substance: .ALPHA.-LIPOIC ACID
     Dosage: UNK

REACTIONS (1)
  - Drug-induced liver injury [Unknown]
